FAERS Safety Report 6167235-1 (Version None)
Quarter: 2009Q2

REPORT INFORMATION
  Report Type: 
  Country: None (occurrence: None)
  Receive Date: 20090424
  Receipt Date: 20090420
  Transmission Date: 20091009
  Serious: Yes (Life-Threatening)
  Sender: FDA-Public Use
  Company Number: FI-JNJFOC-20090403871

PATIENT
  Sex: Female
  Weight: 19 kg

DRUGS (9)
  1. REMICADE [Suspect]
     Dosage: 2ND INFUSION
     Route: 042
  2. REMICADE [Suspect]
     Indication: INFLAMMATORY BOWEL DISEASE
     Dosage: 1ST INFUSION
     Route: 042
  3. ARAVA [Concomitant]
  4. HYDROCORTISONE [Concomitant]
  5. MINISUN [Concomitant]
     Dosage: 10 MCG
  6. RELA [Concomitant]
     Dosage: X2
  7. SOMAC [Concomitant]
     Dosage: X 1
  8. ASACOL [Concomitant]
     Dosage: X1
  9. CALCI CHEW D [Concomitant]

REACTIONS (4)
  - ANAPHYLACTIC REACTION [None]
  - COUGH [None]
  - INFUSION RELATED REACTION [None]
  - THROAT IRRITATION [None]
